FAERS Safety Report 9404594 (Version 1)
Quarter: 2013Q3

REPORT INFORMATION
  Report Type: Spontaneous
  Country: US (occurrence: US)
  Receive Date: 20130717
  Receipt Date: 20130717
  Transmission Date: 20140515
  Serious: No
  Sender: FDA-Public Use
  Company Number: US-PFIZER INC-2013208726

PATIENT
  Age: 64 Year
  Sex: Female
  Weight: 66.21 kg

DRUGS (8)
  1. CALCIUM CARBONATE [Suspect]
     Indication: MINERAL SUPPLEMENTATION
     Dosage: UNK
  2. LEVOTHYROXINE SODIUM [Suspect]
     Indication: HYPOTHYROIDISM
     Dosage: 0.075 MG, 1X/DAY
  3. CENTRUM SILVER WOMEN^S 50+ [Suspect]
     Indication: VITAMIN SUPPLEMENTATION
     Dosage: UNK
  4. RED YEAST RICE [Suspect]
     Indication: BLOOD CHOLESTEROL ABNORMAL
     Dosage: 600 MG, UNK
  5. FLAXSEED OIL [Suspect]
     Indication: BLOOD CHOLESTEROL ABNORMAL
     Dosage: 1200 MG, 1X/DAY
  6. FISH OIL [Suspect]
     Indication: BLOOD CHOLESTEROL ABNORMAL
     Dosage: 1200 MG, 1X/DAY
  7. TURMERIC CURCUMIN [Suspect]
     Indication: BLOOD CHOLESTEROL ABNORMAL
     Dosage: 500 MG, 1X/DAY
  8. COQ10 [Suspect]
     Dosage: 100 MG, 1X/DAY

REACTIONS (1)
  - Hot flush [Unknown]
